FAERS Safety Report 17868628 (Version 3)
Quarter: 2020Q2

REPORT INFORMATION
  Report Type: Report from Study
  Country: US (occurrence: US)
  Receive Date: 20200606
  Receipt Date: 20200615
  Transmission Date: 20200714
  Serious: Yes (Death)
  Sender: FDA-Public Use
  Company Number: US-ROCHE-2522273

PATIENT
  Age: 54 Year
  Sex: Male
  Weight: 88.53 kg

DRUGS (3)
  1. RITUXAN [Suspect]
     Active Substance: RITUXIMAB
     Indication: ARTHRALGIA
  2. RITUXAN [Suspect]
     Active Substance: RITUXIMAB
     Indication: SENILE OSTEOPOROSIS
  3. RITUXAN [Suspect]
     Active Substance: RITUXIMAB
     Indication: POLYARTERITIS NODOSA
     Dosage: 14 DAYS;2 DOSES
     Route: 041
     Dates: start: 2017

REACTIONS (3)
  - Cardiac complication associated with device [Fatal]
  - Off label use [Unknown]
  - Intentional product use issue [Unknown]

NARRATIVE: CASE EVENT DATE: 202002
